FAERS Safety Report 15537870 (Version 1)
Quarter: 2018Q4

REPORT INFORMATION
  Report Type: Spontaneous
  Country: RO (occurrence: RO)
  Receive Date: 20181022
  Receipt Date: 20181022
  Transmission Date: 20190205
  Serious: Yes (Other)
  Sender: FDA-Public Use
  Company Number: RO-JNJFOC-20181028746

PATIENT
  Sex: Female

DRUGS (5)
  1. CLOZAPINE. [Concomitant]
     Active Substance: CLOZAPINE
     Route: 065
     Dates: start: 201504
  2. ROMPARKIN [Concomitant]
     Active Substance: TRIHEXYPHENIDYL
     Route: 065
     Dates: start: 201504
  3. RISPOLEPT CONSTA [Suspect]
     Active Substance: RISPERIDONE
     Indication: SCHIZOPHRENIA
     Route: 030
     Dates: start: 201504, end: 20181017
  4. VALPROIC ACID. [Concomitant]
     Active Substance: VALPROIC ACID
     Route: 065
     Dates: start: 201504
  5. ESCITALOPRAM [Concomitant]
     Active Substance: ESCITALOPRAM OXALATE
     Route: 065
     Dates: start: 201801

REACTIONS (2)
  - Pain in extremity [Not Recovered/Not Resolved]
  - Ecchymosis [Not Recovered/Not Resolved]

NARRATIVE: CASE EVENT DATE: 20181016
